FAERS Safety Report 11786204 (Version 1)
Quarter: 2015Q4

REPORT INFORMATION
  Report Type: Spontaneous
  Country: US (occurrence: US)
  Receive Date: 20151130
  Receipt Date: 20151130
  Transmission Date: 20160305
  Serious: No
  Sender: FDA-Public Use
  Company Number: US-TORRENT-00000860

PATIENT
  Age: 70 Year
  Sex: Female
  Weight: 47 kg

DRUGS (6)
  1. PRAMIPEXOLE DIHYDROCHLORIDE. [Suspect]
     Active Substance: PRAMIPEXOLE DIHYDROCHLORIDE
     Indication: RESTLESS LEGS SYNDROME
     Dosage: 0.25MG AT 5PM AND 0.50MG AT 10PM STARTED DRUG 2012, STOPPED NEAR A YR AGO, STARTED AGAIN NOV2014
     Route: 048
     Dates: start: 2012, end: 201411
  2. MONTELUKAST 10 MG [Concomitant]
     Active Substance: MONTELUKAST SODIUM
  3. TRAZADONE 50 MG [Concomitant]
  4. ZEQERID 20 MG [Concomitant]
  5. REQUIP [Suspect]
     Active Substance: ROPINIROLE HYDROCHLORIDE
     Indication: RESTLESS LEGS SYNDROME
  6. FLONASE [Concomitant]
     Active Substance: FLUTICASONE PROPIONATE

REACTIONS (5)
  - Obsessive-compulsive disorder [Not Recovered/Not Resolved]
  - Somnolence [None]
  - Activities of daily living impaired [None]
  - Compulsive shopping [None]
  - Drug ineffective [None]
